FAERS Safety Report 6463855-5 (Version None)
Quarter: 2009Q4

REPORT INFORMATION
  Report Type: 
  Country: None (occurrence: None)
  Receive Date: 20091130
  Receipt Date: 20091130
  Transmission Date: 20100525
  Serious: Yes (Other)
  Sender: FDA-Public Use
  Company Number: None

PATIENT
  Age: 51 Year
  Sex: Male
  Weight: 80 kg

DRUGS (4)
  1. AZOR [Suspect]
     Indication: HYPERTENSION
     Dosage: 10MG/20 ONE TAB DAILY ORAL 047
     Route: 048
     Dates: start: 20090831, end: 20090923
  2. BENICAR [Suspect]
     Dosage: 40MG ONE TAB DAILY ORAL 047
     Route: 048
     Dates: start: 20090928, end: 20091110
  3. ASPIRIN [Concomitant]
  4. CRESTOR [Concomitant]

REACTIONS (4)
  - ERYTHEMA [None]
  - FLUSHING [None]
  - OEDEMA PERIPHERAL [None]
  - TENDERNESS [None]
